FAERS Safety Report 7575435-9 (Version None)
Quarter: 2011Q2

REPORT INFORMATION
  Report Type: 
  Country: None (occurrence: None)
  Receive Date: 20110627
  Receipt Date: 20110608
  Transmission Date: 20111010
  Serious: Yes (Hospitalization)
  Sender: FDA-Public Use
  Company Number: FR-PFIZER INC-2008039463

PATIENT
  Sex: Female

DRUGS (18)
  1. PIPERACILLIN AND TAZOBACTAM [Suspect]
     Indication: LUNG DISORDER
     Route: 042
     Dates: start: 20071024, end: 20071029
  2. PROPOFOL [Concomitant]
     Dates: start: 20070924, end: 20070924
  3. LEVETIRACETAM [Suspect]
     Indication: PROPHYLAXIS
     Route: 048
     Dates: start: 20070925, end: 20071214
  4. SUFENTANIL CITRATE [Concomitant]
     Dates: start: 20070924, end: 20070924
  5. ENOXAPARIN SODIUM [Concomitant]
     Route: 058
  6. AMIODARONE HYDROCHLORIDE [Concomitant]
     Dates: start: 20071024
  7. FENTANYL [Concomitant]
     Dates: start: 20070924, end: 20071009
  8. INSULIN GLARGINE [Concomitant]
  9. ZYVOX [Suspect]
     Indication: LUNG DISORDER
     Route: 042
     Dates: start: 20071029, end: 20071108
  10. ESOMEPRAZOLE MAGNESIUM [Concomitant]
     Dates: start: 20071212
  11. ASPEGIC 325 [Suspect]
     Indication: PROPHYLAXIS
     Route: 048
     Dates: start: 20070924, end: 20071212
  12. TEICOPLANIN [Suspect]
     Indication: LUNG DISORDER
     Route: 042
     Dates: start: 20071024, end: 20071029
  13. ZOLPIDEM TARTRATE [Concomitant]
  14. PAROXETINE HCL [Concomitant]
  15. URAPIDIL [Concomitant]
     Route: 048
     Dates: start: 20071107
  16. FLUCONAZOLE [Suspect]
     Indication: INFECTION
     Route: 048
     Dates: start: 20071029, end: 20071108
  17. PRISTINAMYCIN [Suspect]
     Route: 048
     Dates: start: 20071029, end: 20071108
  18. AMIKACIN [Suspect]
     Route: 030
     Dates: start: 20071024, end: 20071029

REACTIONS (1)
  - PANCYTOPENIA [None]
